FAERS Safety Report 9265327 (Version 1)
Quarter: 2013Q2

REPORT INFORMATION
  Report Type: Spontaneous
  Country: US (occurrence: US)
  Receive Date: 20130501
  Receipt Date: 20130501
  Transmission Date: 20140414
  Serious: No
  Sender: FDA-Public Use
  Company Number: US-B.I. PHARMACEUTICALS,INC./RIDGEFIELD-2013-BI-11237BP

PATIENT
  Age: 62 Year
  Sex: Male

DRUGS (13)
  1. SPIRIVA [Suspect]
     Indication: CHRONIC OBSTRUCTIVE PULMONARY DISEASE
     Dosage: 18 MCG
     Route: 055
  2. PRAVASTATIN [Concomitant]
     Indication: BLOOD CHOLESTEROL INCREASED
     Route: 048
  3. NITROGLYCERIN [Concomitant]
  4. ASPIRIN [Concomitant]
     Dosage: 325 MG
     Route: 048
  5. ALBUTEROL [Concomitant]
     Route: 055
  6. QVAR [Concomitant]
     Route: 055
  7. PROVENTIL HFA [Concomitant]
     Route: 055
  8. BUPROPION [Concomitant]
     Dosage: 150 MG
     Route: 048
  9. ATENOLOL [Concomitant]
     Indication: HYPERTENSION
     Dosage: 50 MG
     Route: 048
  10. FUROSEMIDE [Concomitant]
     Indication: OEDEMA PERIPHERAL
     Dosage: 20 MG
     Route: 048
  11. KLORCON [Concomitant]
     Dosage: 20 MEQ
     Route: 048
  12. ISOSORBIDE [Concomitant]
     Dosage: 30 MG
     Route: 048
  13. LORAZEPAM [Concomitant]
     Route: 048

REACTIONS (3)
  - Rash [Not Recovered/Not Resolved]
  - Product quality issue [Recovered/Resolved]
  - Product quality issue [Recovered/Resolved]
